FAERS Safety Report 14403173 (Version 1)
Quarter: 2018Q1

REPORT INFORMATION
  Report Type: Spontaneous
  Country: US (occurrence: US)
  Receive Date: 20180117
  Receipt Date: 20180117
  Transmission Date: 20180509
  Serious: No
  Sender: FDA-Public Use
  Company Number: US-009507513-1712USA013828

PATIENT
  Sex: Male

DRUGS (1)
  1. PROPECIA [Suspect]
     Active Substance: FINASTERIDE
     Dosage: ONE TABLET, ONCE A DAY IN EVENING
     Route: 048

REACTIONS (2)
  - Dysuria [Not Recovered/Not Resolved]
  - Product physical issue [Unknown]
